FAERS Safety Report 8533179-0 (Version None)
Quarter: 2012Q3

REPORT INFORMATION
  Report Type: 
  Country: None (occurrence: None)
  Receive Date: 20120724
  Receipt Date: 20120716
  Transmission Date: 20120928
  Serious: Yes (Hospitalization)
  Sender: FDA-Public Use
  Company Number: US-009507513-1207USA007671

PATIENT

DRUGS (10)
  1. MK-3034 [Suspect]
  2. MULTIVITAMINES [Concomitant]
     Indication: VITAMIN SUPPLEMENTATION
     Dosage: 1 UNK, UNK
     Route: 048
     Dates: start: 20070901
  3. OXYCODONE HCL [Concomitant]
     Indication: BACK PAIN
  4. AMOXICILLIN [Concomitant]
     Indication: FOLLICULITIS
     Dosage: 500 MG, QD
     Route: 048
     Dates: start: 20120512, end: 20120521
  5. ALBUTEROL [Concomitant]
     Indication: SEASONAL ALLERGY
     Dosage: 2 PUFFS, PRN
     Route: 055
     Dates: start: 20100101
  6. LORATADINE [Concomitant]
     Indication: SEASONAL ALLERGY
     Dosage: 10 MGM, QD
     Route: 048
     Dates: start: 20080112
  7. PRILOSEC [Concomitant]
     Indication: GASTROOESOPHAGEAL REFLUX DISEASE
     Dosage: 20 MG, QD
     Route: 048
     Dates: start: 20081001
  8. ASPIRIN [Concomitant]
     Indication: PROPHYLAXIS
     Dosage: 81 MG, QD
     Route: 048
     Dates: start: 20090101
  9. GASTROINTESTINAL PREPARATIONS (UNSPECIFIED) [Concomitant]
     Indication: CONSTIPATION PROPHYLAXIS
     Dosage: 1 DF, UNK
     Route: 048
     Dates: start: 20071001
  10. OXYCODONE HCL [Concomitant]
     Indication: NECK PAIN
     Dosage: 30 MG, Q4H
     Route: 048
     Dates: start: 20110101, end: 20120714

REACTIONS (1)
  - CHEST PAIN [None]
